FAERS Safety Report 5673868-9 (Version None)
Quarter: 2008Q2

REPORT INFORMATION
  Report Type: 
  Country: None (occurrence: None)
  Receive Date: 20080226
  Receipt Date: 20070514
  Transmission Date: 20081010
  Serious: Yes (Other)
  Sender: FDA-Public Use
  Company Number: 497944

PATIENT

DRUGS (1)
  1. ISOTRETINOIN [Suspect]
     Indication: DRUG USE FOR UNKNOWN INDICATION
     Dosage: ORAL
     Route: 048
     Dates: start: 20070215

REACTIONS (2)
  - PREGNANCY OF PARTNER [None]
  - TRANSMISSION OF DRUG VIA SEMEN [None]
